FAERS Safety Report 7402326-6 (Version None)
Quarter: 2011Q1

REPORT INFORMATION
  Report Type: 
  Country: None (occurrence: None)
  Receive Date: 20110331
  Receipt Date: 20110318
  Transmission Date: 20110831
  Serious: Yes (Other)
  Sender: FDA-Public Use
  Company Number: THQ2011A01019

PATIENT
  Age: 29 Year
  Sex: Female

DRUGS (2)
  1. ZOTON FASTABS (LANSOPRAZOLE) [Suspect]
     Indication: RETT'S DISORDER
     Dosage: 60 MG (30 MG, 2 IN 1 D) PER ORAL
     Route: 048
  2. PHENYTOIN SODIUM CAP [Suspect]
     Indication: RETT'S DISORDER
     Dosage: 150 MG (180 MG, 2 IN 1 D) PER ORAL; PER ORAL
     Route: 048

REACTIONS (3)
  - SWELLING [None]
  - ENLARGED CLITORIS [None]
  - GINGIVAL HYPERPLASIA [None]
